FAERS Safety Report 18947729 (Version 1)
Quarter: 2021Q1

REPORT INFORMATION
  Report Type: Spontaneous
  Country: CH (occurrence: CH)
  Receive Date: 20210226
  Receipt Date: 20210226
  Transmission Date: 20210420
  Serious: Yes (Other)
  Sender: FDA-Public Use
  Company Number: CH-009507513-2102CHE008962

PATIENT
  Age: 46 Year

DRUGS (1)
  1. PEMBROLIZUMAB. [Suspect]
     Active Substance: PEMBROLIZUMAB
     Indication: LUNG ADENOCARCINOMA STAGE IV
     Dosage: UNKNOWN
     Dates: start: 201703

REACTIONS (1)
  - Lung lobectomy [Unknown]

NARRATIVE: CASE EVENT DATE: 201803
